FAERS Safety Report 23539136 (Version 6)
Quarter: 2024Q3

REPORT INFORMATION
  Report Type: Spontaneous
  Country: US (occurrence: US)
  Receive Date: 20240219
  Receipt Date: 20240711
  Transmission Date: 20241017
  Serious: Yes (Disabling)
  Sender: SANOFI AVENTIS
  Company Number: US-SA-SAC20240219000134

PATIENT
  Age: 43 Year
  Sex: Female

DRUGS (2)
  1. DUPIXENT [Suspect]
     Active Substance: DUPILUMAB
     Indication: Asthma
     Dosage: 600 MG, 1X
     Route: 058
     Dates: start: 202312, end: 202312
  2. DUPIXENT [Suspect]
     Active Substance: DUPILUMAB
     Dosage: 300 MG, QOW
     Route: 058
     Dates: start: 202401

REACTIONS (9)
  - Loss of personal independence in daily activities [Unknown]
  - Dyspnoea [Unknown]
  - Chest discomfort [Unknown]
  - Secretion discharge [Unknown]
  - Respiratory disorder [Unknown]
  - Back pain [Unknown]
  - Ocular hyperaemia [Unknown]
  - Therapeutic response decreased [Unknown]
  - Conjunctivitis [Unknown]

NARRATIVE: CASE EVENT DATE: 20240101
